FAERS Safety Report 10706294 (Version 1)
Quarter: 2015Q1

REPORT INFORMATION
  Report Type: Report from Study
  Country: DE (occurrence: None)
  Receive Date: 20150109
  Receipt Date: 20150109
  Transmission Date: 20150721
  Serious: Yes (Death, Hospitalization, Other)
  Sender: FDA-Public Use
  Company Number: 2693866

PATIENT
  Age: 73 Year
  Sex: Male

DRUGS (16)
  1. (ACETYLSALICYLIC ACID) [Concomitant]
  2. (ZOLEDRONIC ACID) [Concomitant]
  3. (GEMCITABINE HYDROCHLORIDE) [Suspect]
     Active Substance: GEMCITABINE HYDROCHLORIDE
     Indication: PANCREATIC CARCINOMA
     Dosage: INTRAVENOUS (NOT OTHERWISE SPECIFIED)
     Route: 042
     Dates: start: 20140425, end: 20140502
  4. (AMOXICILLIN TRINITRATE AND POTASSIUM CLAVULAN) [Concomitant]
  5. (RAMIPRIL) [Concomitant]
  6. ERLOTINIB [Suspect]
     Active Substance: ERLOTINIB
     Indication: PANCREATIC CARCINOMA
     Route: 048
     Dates: start: 20140425, end: 20140430
  7. FUROSEMIDE) [Concomitant]
  8. (PANCREATIN) [Concomitant]
  9. (METAMIZOLE SODIUM) [Concomitant]
  10. (PANTOPRAZOLE SODIUM SESQUIHYDRATE) [Concomitant]
  11. (INSULIN GLARGINE) [Concomitant]
  12. (BROMAZEPAM) [Concomitant]
  13. (MACROGOL) [Concomitant]
  14. (MORPHINE SULFATE) [Concomitant]
  15. (TORASEMIDE) [Concomitant]
  16. (PARPXETINE) [Concomitant]

REACTIONS (11)
  - Bradycardia [None]
  - Atrioventricular block [None]
  - Cerebral infarction [None]
  - Respiratory failure [None]
  - Chills [None]
  - Dyspnoea [None]
  - General physical health deterioration [None]
  - Infection [None]
  - Pyrexia [None]
  - Cerebral thrombosis [None]
  - Pneumonia aspiration [None]

NARRATIVE: CASE EVENT DATE: 20140429
